FAERS Safety Report 18202579 (Version 3)
Quarter: 2020Q4

REPORT INFORMATION
  Report Type: Spontaneous
  Country: US (occurrence: US)
  Receive Date: 20200827
  Receipt Date: 20201009
  Transmission Date: 20210113
  Serious: No
  Sender: FDA-Public Use
  Company Number: US-GILEAD-2020-0491764

PATIENT
  Sex: Male

DRUGS (6)
  1. FOLIC ACID. [Concomitant]
     Active Substance: FOLIC ACID
  2. METFORMIN HYDROCHLORIDE. [Concomitant]
     Active Substance: METFORMIN HYDROCHLORIDE
  3. LISINOPRIL. [Concomitant]
     Active Substance: LISINOPRIL
  4. IBUPROFEN. [Concomitant]
     Active Substance: IBUPROFEN
  5. SOFOSBUVIR;VELPATASVIR [Suspect]
     Active Substance: SOFOSBUVIR\VELPATASVIR
     Indication: CHRONIC HEPATITIS C
     Dosage: SOFOSBUVIR/VELPATASVIR 400MG-100MG | TAKE 1 TABLET BY MOUTH ONCE DAILY
     Route: 048
     Dates: start: 202007
  6. ASPIRINE [Concomitant]
     Active Substance: ASPIRIN

REACTIONS (2)
  - Back pain [Not Recovered/Not Resolved]
  - Heart rate increased [Not Recovered/Not Resolved]
